FAERS Safety Report 9825534 (Version 1)
Quarter: 2014Q1

REPORT INFORMATION
  Report Type: Report from Study
  Country: CA (occurrence: CA)
  Receive Date: 20140117
  Receipt Date: 20140117
  Transmission Date: 20141002
  Serious: Yes (Other)
  Sender: FDA-Public Use
  Company Number: CA-JNJFOC-20140106669

PATIENT
  Age: 20 Year
  Sex: Female

DRUGS (5)
  1. REMICADE [Suspect]
     Indication: COLITIS ULCERATIVE
     Route: 042
     Dates: start: 20120607
  2. BENADRYL [Suspect]
     Indication: PREMEDICATION
     Dosage: 25-50MG
     Route: 065
  3. HYDROCORTISONE [Suspect]
     Indication: PREMEDICATION
     Route: 065
  4. TYLENOL [Suspect]
     Route: 065
  5. TYLENOL [Suspect]
     Indication: PREMEDICATION
     Route: 065

REACTIONS (2)
  - Abortion spontaneous [Unknown]
  - Exposure during pregnancy [Recovered/Resolved]
